FAERS Safety Report 7103638-6 (Version None)
Quarter: 2010Q4

REPORT INFORMATION
  Report Type: 
  Country: None (occurrence: None)
  Receive Date: 20101115
  Receipt Date: 20101101
  Transmission Date: 20110411
  Serious: Yes (Death, Other)
  Sender: FDA-Public Use
  Company Number: NZ-ELI_LILLY_AND_COMPANY-NZ201009007349

PATIENT
  Age: 31 Year
  Sex: Male

DRUGS (9)
  1. ZYPREXA [Suspect]
     Indication: BIPOLAR DISORDER
     Dosage: 20 MG, DAILY (1/D)
  2. ZYPREXA [Suspect]
     Dosage: 30 MG, DAILY (1/D)
  3. ZYPREXA [Suspect]
     Dosage: 20 MG, DAILY (1/D)
  4. ZYPREXA [Suspect]
     Dosage: 17.5 MG, DAILY (1/D)
  5. ZYPREXA [Suspect]
     Dosage: 15 MG, EACH EVENING
  6. LITHIUM [Concomitant]
     Indication: MOOD SWINGS
     Dosage: 1000 MG, UNK
  7. IMOVANE [Concomitant]
     Indication: HYPOMANIA
     Dosage: 15 MG, AS NEEDED
  8. IMOVANE [Concomitant]
     Dosage: 15 MG, DAILY (1/D)
     Dates: start: 20101014, end: 20101014
  9. INHIBACE [Concomitant]

REACTIONS (6)
  - ANTIPSYCHOTIC DRUG LEVEL [None]
  - DEPRESSED LEVEL OF CONSCIOUSNESS [None]
  - DRUG DOSE OMISSION [None]
  - DRUG INTERACTION [None]
  - HYPOMANIA [None]
  - OVERDOSE [None]
